FAERS Safety Report 5125847-8 (Version None)
Quarter: 2006Q4

REPORT INFORMATION
  Report Type: 
  Country: None (occurrence: None)
  Receive Date: 20061012
  Receipt Date: 20060920
  Transmission Date: 20070319
  Serious: Yes (Hospitalization)
  Sender: FDA-Public Use
  Company Number: PHEH2006US12052

PATIENT
  Age: 39 Year
  Sex: Male
  Weight: 52.3 kg

DRUGS (4)
  1. EXJADE [Suspect]
     Indication: HAEMOCHROMATOSIS
     Dosage: 1000 MG/QD
     Route: 048
     Dates: start: 20060526, end: 20060919
  2. FOLIC ACID [Concomitant]
     Indication: HAEMOLYSIS
     Dosage: 1 MG, TID
     Route: 048
  3. NPH INSULIN [Concomitant]
     Indication: DIABETES MELLITUS
  4. LEVOXYL [Concomitant]
     Indication: HYPOTHYROIDISM
     Dosage: 75 MG, UNK
     Route: 048

REACTIONS (7)
  - DIARRHOEA [None]
  - HAEMOLYSIS [None]
  - LIVER FUNCTION TEST ABNORMAL [None]
  - ORAL INTAKE REDUCED [None]
  - PYREXIA [None]
  - SHOCK [None]
  - WHITE BLOOD CELL COUNT INCREASED [None]
